FAERS Safety Report 7450587-X (Version None)
Quarter: 2011Q2

REPORT INFORMATION
  Report Type: 
  Country: None (occurrence: None)
  Receive Date: 20110502
  Receipt Date: 20110419
  Transmission Date: 20111010
  Serious: Yes (Hospitalization, Other)
  Sender: FDA-Public Use
  Company Number: US-ELI_LILLY_AND_COMPANY-US201009007461

PATIENT
  Sex: Female

DRUGS (1)
  1. FORTEO [Suspect]
     Dosage: 20 UG, DAILY (1/D)
     Route: 058
     Dates: start: 20100818

REACTIONS (7)
  - CEREBROVASCULAR ACCIDENT [None]
  - EMPHYSEMA [None]
  - ANGIOGRAM [None]
  - BRONCHOPNEUMONIA [None]
  - FALL [None]
  - JOINT SWELLING [None]
  - HOSPITALISATION [None]
